FAERS Safety Report 4674021-8 (Version None)
Quarter: 2005Q2

REPORT INFORMATION
  Report Type: 
  Country: None (occurrence: None)
  Receive Date: 20050525
  Receipt Date: 20050518
  Transmission Date: 20051028
  Serious: Yes (Death, Hospitalization)
  Sender: FDA-Public Use
  Company Number: 2005076918

PATIENT
  Sex: Male

DRUGS (10)
  1. MEDROL [Suspect]
     Indication: CHRONIC OBSTRUCTIVE PULMONARY DISEASE
  2. DIOVAN ^NOVARTIS^ (VALSARTAN) [Suspect]
     Indication: HYPERTENSION
     Dosage: 1600 MG, ORAL
     Route: 048
     Dates: start: 20041028
  3. SERETIDE (FLUTICASONE PROPIOANTE, SALMETEROL XINAFOATE) [Concomitant]
  4. THEOPHYLLINE [Concomitant]
  5. SPIRIVA (CALAMINE, CAMPHOR, DIPHENYDRAMINE) [Concomitant]
  6. D-CURE (COLECALCIFEROL) [Concomitant]
  7. CRESTOR [Concomitant]
  8. CALCIUM CARBONATE (CALCIUM CARBOANTE) [Concomitant]
  9. TRAZOLAN (TRAZODONE HYDROCHLORIDE) [Concomitant]
  10. ATARAX [Concomitant]

REACTIONS (2)
  - FUNGAL INFECTION [None]
  - HYPERTENSION [None]
